FAERS Safety Report 17442294 (Version 2)
Quarter: 2020Q1

REPORT INFORMATION
  Report Type: Spontaneous
  Country: FR (occurrence: FR)
  Receive Date: 20200220
  Receipt Date: 20200330
  Transmission Date: 20200409
  Serious: Yes (Death, Hospitalization)
  Sender: FDA-Public Use
  Company Number: FR-PURDUE-GBR-2020-0075104

PATIENT
  Age: 89 Year
  Sex: Female

DRUGS (11)
  1. OXYCONTIN [Suspect]
     Active Substance: OXYCODONE HYDROCHLORIDE
     Indication: BACK PAIN
     Dosage: 10 MG, DAILY (STRENGTH 10MG)
     Route: 048
     Dates: start: 20200117, end: 20200117
  2. ATORVASTATINE [Concomitant]
     Active Substance: ATORVASTATIN
  3. NEFOPAM HYDROCHLORIDE [Concomitant]
     Active Substance: NEFOPAM HYDROCHLORIDE
  4. POTASSIUM CHLORIDE. [Concomitant]
     Active Substance: POTASSIUM CHLORIDE
  5. DABIGATRAN ETEXILATE [Concomitant]
     Active Substance: DABIGATRAN ETEXILATE
  6. LEVOTHYROXINE SODIUM. [Concomitant]
     Active Substance: LEVOTHYROXINE SODIUM
  7. BROMAZEPAM [Concomitant]
     Active Substance: BROMAZEPAM
  8. ESOMEPRAZOLE. [Concomitant]
     Active Substance: ESOMEPRAZOLE MAGNESIUM
  9. INDAPAMIDE. [Concomitant]
     Active Substance: INDAPAMIDE
  10. LERCANIDIPINE HYDROCHLORIDE [Concomitant]
     Active Substance: LERCANIDIPINE HYDROCHLORIDE
  11. CALCIUM [Concomitant]
     Active Substance: CALCIUM

REACTIONS (6)
  - Dyspnoea [Fatal]
  - Livedo reticularis [Fatal]
  - Cyanosis [Fatal]
  - Pneumonia aspiration [Fatal]
  - Somnolence [Fatal]
  - Miosis [Fatal]

NARRATIVE: CASE EVENT DATE: 20200117
